FAERS Safety Report 14680126 (Version 1)
Quarter: 2018Q1

REPORT INFORMATION
  Report Type: Spontaneous
  Country: ZA (occurrence: ZA)
  Receive Date: 20180326
  Receipt Date: 20180326
  Transmission Date: 20180509
  Serious: Yes (Hospitalization)
  Sender: FDA-Public Use
  Company Number: ZA-ALSI-201900192

PATIENT
  Age: 26 Year
  Sex: Male

DRUGS (1)
  1. OXYGEN. [Suspect]
     Active Substance: OXYGEN
     Indication: OCCUPATIONAL EXPOSURE TO PRODUCT
     Route: 050
     Dates: start: 20180309, end: 20180309

REACTIONS (3)
  - Thermal burn [Unknown]
  - Accident [Unknown]
  - Occupational exposure to product [Unknown]

NARRATIVE: CASE EVENT DATE: 20180309
